FAERS Safety Report 9964108 (Version 1)
Quarter: 2014Q1

REPORT INFORMATION
  Report Type: Spontaneous
  Country: DE (occurrence: DE)
  Receive Date: 20140305
  Receipt Date: 20140305
  Transmission Date: 20141002
  Serious: Yes (Other)
  Sender: FDA-Public Use
  Company Number: DE-JNJFOC-20140217139

PATIENT
  Sex: 0

DRUGS (2)
  1. INFLIXIMAB, RECOMBINANT [Suspect]
     Indication: SPONDYLITIS
     Dosage: WEEKS 0, 2, 6, 12, 18, AND 24
     Route: 042
  2. NAPROXEN [Suspect]
     Indication: SPONDYLITIS
     Route: 065

REACTIONS (1)
  - Adverse event [Unknown]
